FAERS Safety Report 6788500-0 (Version None)
Quarter: 2010Q2

REPORT INFORMATION
  Report Type: 
  Country: None (occurrence: None)
  Receive Date: 20100623
  Receipt Date: 20080602
  Transmission Date: 20101027
  Serious: Yes (Other)
  Sender: FDA-Public Use
  Company Number: US-PFIZER INC-2008025225

PATIENT
  Sex: Male
  Weight: 59.1 kg

DRUGS (4)
  1. GEODON [Suspect]
     Indication: IMPULSIVE BEHAVIOUR
     Dates: start: 20080228
  2. CELEXA [Concomitant]
  3. PHENOBARBITAL [Concomitant]
  4. KEPPRA [Concomitant]

REACTIONS (9)
  - CONVULSION [None]
  - DIZZINESS [None]
  - HEADACHE [None]
  - HEART RATE INCREASED [None]
  - IMPULSIVE BEHAVIOUR [None]
  - IRRITABILITY [None]
  - PERFORMANCE STATUS DECREASED [None]
  - SOMNOLENCE [None]
  - WEIGHT DECREASED [None]
